FAERS Safety Report 22181181 (Version 3)
Quarter: 2023Q4

REPORT INFORMATION
  Report Type: Spontaneous
  Country: US (occurrence: US)
  Receive Date: 20230406
  Receipt Date: 20231019
  Transmission Date: 20240109
  Serious: Yes (Other)
  Sender: FDA-Public Use
  Company Number: US-PFIZER INC-PV202300062308

PATIENT
  Age: 34 Year
  Sex: Female

DRUGS (1)
  1. XELJANZ XR [Suspect]
     Active Substance: TOFACITINIB CITRATE
     Indication: Arthritis
     Dosage: 11 MG

REACTIONS (5)
  - Autoimmune neuropathy [Unknown]
  - Neuralgia [Unknown]
  - Formication [Unknown]
  - Small fibre neuropathy [Unknown]
  - Product dose omission issue [Unknown]
